FAERS Safety Report 13136949 (Version 1)
Quarter: 2017Q1

REPORT INFORMATION
  Report Type: Report from Study
  Country: US (occurrence: US)
  Receive Date: 20170123
  Receipt Date: 20170123
  Transmission Date: 20170428
  Serious: Yes (Hospitalization, Other)
  Sender: FDA-Public Use
  Company Number: US-AEGERION PHARMACEUTICAL INC-AEGR002908

PATIENT
  Age: 72 Year
  Sex: Male
  Weight: 86.17 kg

DRUGS (1)
  1. JUXTAPID [Suspect]
     Active Substance: LOMITAPIDE MESYLATE
     Indication: TYPE IIA HYPERLIPIDAEMIA
     Dosage: 5 MG, QD
     Route: 048
     Dates: start: 201312

REACTIONS (2)
  - Musculoskeletal disorder [Unknown]
  - Hospitalisation [Unknown]

NARRATIVE: CASE EVENT DATE: 201701
